FAERS Safety Report 10885786 (Version 1)
Quarter: 2015Q1

REPORT INFORMATION
  Report Type: Spontaneous
  Country: PL (occurrence: None)
  Receive Date: 20150302
  Receipt Date: 20150302
  Transmission Date: 20150721
  Serious: Yes (Hospitalization, Other)
  Sender: FDA-Public Use
  Company Number: PL-2015VAL000179

PATIENT
  Age: 28 Year
  Sex: Male

DRUGS (1)
  1. METOPROLOL TARTRATE (METOPROLOL TARTRATE) UNKNOWN [Suspect]
     Active Substance: METOPROLOL TARTRATE
     Indication: ARRHYTHMIA

REACTIONS (3)
  - Off label use [None]
  - Ventricular tachycardia [None]
  - Drug ineffective [None]
